FAERS Safety Report 11074401 (Version 1)
Quarter: 2015Q2

REPORT INFORMATION
  Report Type: Spontaneous
  Country: CA (occurrence: CA)
  Receive Date: 20150429
  Receipt Date: 20150429
  Transmission Date: 20150821
  Serious: Yes (Other)
  Sender: FDA-Public Use
  Company Number: CA-ROCHE-1568528

PATIENT

DRUGS (2)
  1. CAPECITABINE. [Suspect]
     Active Substance: CAPECITABINE
     Indication: PANCREATIC NEUROENDOCRINE TUMOUR
     Route: 065
  2. TEMODAL [Suspect]
     Active Substance: TEMOZOLOMIDE
     Indication: PANCREATIC NEUROENDOCRINE TUMOUR
     Route: 048

REACTIONS (2)
  - Drug tolerance decreased [Unknown]
  - Myocardial infarction [Unknown]
